FAERS Safety Report 14805386 (Version 1)
Quarter: 2018Q1

REPORT INFORMATION
  Report Type: Spontaneous
  Country: US (occurrence: US)
  Receive Date: 20180330
  Receipt Date: 20180330
  Transmission Date: 20180509
  Serious: Yes (Life-Threatening, Hospitalization)
  Sender: FDA-Public Use
  Company Number: None

PATIENT
  Age: 49 Year
  Sex: Female
  Weight: 85.5 kg

DRUGS (3)
  1. GAMUNEX-C [Suspect]
     Active Substance: HUMAN IMMUNOGLOBULIN G
     Indication: CHRONIC INFLAMMATORY DEMYELINATING POLYRADICULONEUROPATHY
     Dosage: ?          OTHER FREQUENCY:MONTHLY;?
     Route: 042
     Dates: start: 20180220
  2. MYDAYIS 50MG [Concomitant]
     Dates: start: 20180109
  3. GAMUNEX-C [Suspect]
     Active Substance: HUMAN IMMUNOGLOBULIN G
     Indication: CHRONIC INFLAMMATORY DEMYELINATING POLYRADICULONEUROPATHY
     Route: 042
     Dates: start: 20180220

REACTIONS (10)
  - Wheezing [None]
  - Loss of consciousness [None]
  - Respiratory arrest [None]
  - Nausea [None]
  - Vomiting [None]
  - Hypotension [None]
  - Anaphylactic reaction [None]
  - Mental status changes [None]
  - Chest discomfort [None]
  - Diarrhoea [None]

NARRATIVE: CASE EVENT DATE: 20180220
